FAERS Safety Report 13983145 (Version 2)
Quarter: 2017Q4

REPORT INFORMATION
  Report Type: Spontaneous
  Country: BE (occurrence: BE)
  Receive Date: 20170918
  Receipt Date: 20171122
  Transmission Date: 20180321
  Serious: Yes (Death)
  Sender: FDA-Public Use
  Company Number: BE-JNJFOC-20170911311

PATIENT
  Age: 8 Year
  Sex: Female

DRUGS (24)
  1. KONAKION [Concomitant]
     Active Substance: PHYTONADIONE
     Route: 042
  2. TEMESTA (LORAZEPAM) [Concomitant]
     Active Substance: LORAZEPAM
     Indication: IRRITABILITY
     Route: 048
  3. SOLU-CORTEF [Concomitant]
     Active Substance: HYDROCORTISONE SODIUM SUCCINATE
     Dosage: DOSE- 3- 5 MG
     Route: 042
  4. PARACETAMOL FRESENIUS [Concomitant]
     Indication: PAIN
     Route: 042
  5. FRISIUM [Concomitant]
     Active Substance: CLOBAZAM
     Dosage: BEFORE NIGHT
     Route: 048
  6. HALDOL [Suspect]
     Active Substance: HALOPERIDOL
     Indication: IRRITABILITY
     Route: 048
     Dates: start: 201709
  7. HALDOL [Suspect]
     Active Substance: HALOPERIDOL
     Indication: IRRITABILITY
     Route: 048
     Dates: end: 201709
  8. DAKTARIN [Concomitant]
     Active Substance: MICONAZOLE NITRATE
     Route: 061
  9. METFORMAX [Concomitant]
     Active Substance: METFORMIN HYDROCHLORIDE
     Route: 048
  10. DAFALGAN [Concomitant]
     Active Substance: ACETAMINOPHEN
     Indication: PAIN
     Route: 048
  11. CONTRAMAL [Concomitant]
     Active Substance: TRAMADOL HYDROCHLORIDE
     Route: 041
  12. CONTRAMAL [Concomitant]
     Active Substance: TRAMADOL HYDROCHLORIDE
     Indication: PAIN
     Route: 040
  13. GLUCOSE [Concomitant]
     Active Substance: DEXTROSE
     Route: 042
  14. HYDROCORTISONE. [Concomitant]
     Active Substance: HYDROCORTISONE
     Route: 048
  15. MELATONINE [Concomitant]
     Active Substance: MELATONIN
     Dosage: 10 MG, 2 HOURS BEFORE NIGHT
     Route: 048
  16. DIFFERIN [Concomitant]
     Active Substance: ADAPALENE
     Indication: ACANTHOSIS NIGRICANS
     Route: 061
  17. HALDOL [Suspect]
     Active Substance: HALOPERIDOL
     Indication: CONDUCT DISORDER
     Route: 048
     Dates: start: 201709
  18. DUROGESIC [Concomitant]
     Active Substance: FENTANYL
     Route: 062
  19. RILATINE [Concomitant]
     Active Substance: METHYLPHENIDATE HYDROCHLORIDE
     Dosage: IN THE MORNING
     Route: 048
  20. SODIUM CHLORIDE. [Concomitant]
     Active Substance: SODIUM CHLORIDE
     Route: 042
  21. DESMOPRESSIN FERRING [Concomitant]
     Indication: POLYURIA
     Route: 048
  22. L THYROXINE [Concomitant]
     Active Substance: LEVOTHYROXINE SODIUM
     Route: 048
  23. HALDOL [Suspect]
     Active Substance: HALOPERIDOL
     Indication: CONDUCT DISORDER
     Route: 048
     Dates: end: 201709
  24. FEROGRAD [Concomitant]
     Active Substance: ASCORBIC ACID\FERROUS SULFATE
     Route: 048

REACTIONS (5)
  - Electrocardiogram QT prolonged [Unknown]
  - Sedation [Unknown]
  - Death [Fatal]
  - Respiratory depression [Unknown]
  - Increased appetite [Unknown]

NARRATIVE: CASE EVENT DATE: 2017
